FAERS Safety Report 18699433 (Version 2)
Quarter: 2021Q1

REPORT INFORMATION
  Report Type: Report from Study
  Country: None (occurrence: US)
  Receive Date: 20210105
  Receipt Date: 20210106
  Transmission Date: 20210419
  Serious: Yes (Hospitalization, Other)
  Sender: FDA-Public Use
  Company Number: US-ABBVIE-20K-163-3714220-00

PATIENT
  Age: 65 Year
  Sex: Male

DRUGS (2)
  1. INQOVI [Concomitant]
     Active Substance: CEDAZURIDINE\DECITABINE
     Indication: ACUTE MYELOID LEUKAEMIA
     Dates: start: 20201214
  2. VENCLEXTA [Suspect]
     Active Substance: VENETOCLAX
     Indication: ACUTE MYELOID LEUKAEMIA
     Dosage: 10MG AND 50MG TABLETS (70MG DAILY ON DAYS 1?10 OF EACH 28 DAY CYCLE)
     Route: 048
     Dates: start: 20201214

REACTIONS (7)
  - Pulmonary mycosis [Recovering/Resolving]
  - Neutropenia [Unknown]
  - Epistaxis [Recovered/Resolved]
  - Red blood cell abnormality [Unknown]
  - Platelet disorder [Unknown]
  - Immunodeficiency [Unknown]
  - Laboratory test abnormal [Unknown]

NARRATIVE: CASE EVENT DATE: 202012
